FAERS Safety Report 6246841-X (Version None)
Quarter: 2009Q2

REPORT INFORMATION
  Report Type: 
  Country: None (occurrence: None)
  Receive Date: 20090626
  Receipt Date: 20090619
  Transmission Date: 20091009
  Serious: Yes (Hospitalization)
  Sender: FDA-Public Use
  Company Number: US-BAYER-200918653NA

PATIENT
  Age: 80 Year
  Sex: Female

DRUGS (20)
  1. NEXAVAR [Suspect]
     Indication: RENAL CELL CARCINOMA
     Dosage: TOTAL DAILY DOSE: 200 MG  UNIT DOSE: 200 MG
     Route: 048
     Dates: start: 20090401, end: 20090409
  2. NEXAVAR [Suspect]
     Dosage: TOTAL DAILY DOSE: 400 MG  UNIT DOSE: 200 MG
     Route: 048
     Dates: start: 20090410, end: 20090417
  3. NEXAVAR [Suspect]
     Dosage: TOTAL DAILY DOSE: 200 MG  UNIT DOSE: 200 MG
     Route: 048
     Dates: start: 20090501, end: 20090508
  4. COUMADIN [Concomitant]
  5. COUMADIN [Concomitant]
     Dosage: ALTERNATING WITH 2 MG
  6. COUMADIN [Concomitant]
  7. COUMADIN [Concomitant]
     Dosage: ALTERNATING WITH 4 MG
  8. BENICAR [Concomitant]
  9. BENICAR [Concomitant]
  10. NEXIUM [Concomitant]
     Dosage: TOTAL DAILY DOSE: 40 MG
  11. LIPITOR [Concomitant]
     Dosage: TOTAL DAILY DOSE: 40 MG
  12. BISOPROLOL [Concomitant]
     Dosage: TOTAL DAILY DOSE: 5  MG
  13. RESTORIL [Concomitant]
  14. RESTORIL [Concomitant]
     Dosage: TOTAL DAILY DOSE: 30 MG
  15. VICODIN [Concomitant]
  16. AMLODIPINE [Concomitant]
     Dosage: TOTAL DAILY DOSE: 10 MG
  17. OSCAL WITH VITAMIN D [Concomitant]
     Dosage: TOTAL DAILY DOSE: 500 MG
  18. MAGNESIUM OXIDE [Concomitant]
     Dosage: TOTAL DAILY DOSE: 266 MG
  19. TEKTURNA [Concomitant]
     Dosage: TOTAL DAILY DOSE: 150 MG
  20. HYDROCHLOROTHIAZIDE [Concomitant]
     Dosage: TOTAL DAILY DOSE: 25 MG

REACTIONS (4)
  - FAECALOMA [None]
  - OROPHARYNGEAL PAIN [None]
  - PALMAR-PLANTAR ERYTHRODYSAESTHESIA SYNDROME [None]
  - PLEURAL EFFUSION [None]
